FAERS Safety Report 10044822 (Version 1)
Quarter: 2014Q1

REPORT INFORMATION
  Report Type: Spontaneous
  Country: US (occurrence: None)
  Receive Date: 20140306
  Receipt Date: 20140306
  Transmission Date: 20141002
  Serious: Yes (Other)
  Sender: FDA-Public Use
  Company Number: 163-21880-13053350

PATIENT
  Age: 64 Year
  Sex: Female

DRUGS (2)
  1. REVLIMID (LENALIDOMIDE) (25 MILLIGRAM, CAPSULES) [Suspect]
     Indication: PLASMA CELL MYELOMA
     Dosage: 5/2007 - DISCONTINUED (1 IN 1 D)
     Route: 048
     Dates: start: 200705
  2. COUMADIN (WARFARIN SODIUM) [Concomitant]

REACTIONS (2)
  - Thrombosis [None]
  - Cerebrovascular accident [None]
